FAERS Safety Report 21231360 (Version 1)
Quarter: 2022Q3

REPORT INFORMATION
  Report Type: Spontaneous
  Country: JP (occurrence: None)
  Receive Date: 20220819
  Receipt Date: 20220819
  Transmission Date: 20221027
  Serious: Yes (Death, Other)
  Sender: FDA-Public Use
  Company Number: 2022A286840

PATIENT
  Age: 76 Year
  Sex: Female

DRUGS (1)
  1. GEFITINIB [Suspect]
     Active Substance: GEFITINIB
     Indication: Adenosquamous cell carcinoma
     Route: 048

REACTIONS (2)
  - Malignant neoplasm progression [Fatal]
  - Drug resistance [Not Recovered/Not Resolved]
